FAERS Safety Report 5422140-0 (Version None)
Quarter: 2007Q3

REPORT INFORMATION
  Report Type: 
  Country: None (occurrence: None)
  Receive Date: 20070822
  Receipt Date: 20070813
  Transmission Date: 20080115
  Serious: Yes (Hospitalization)
  Sender: FDA-Public Use
  Company Number: AU-ASTRAZENECA-2007AP04967

PATIENT
  Age: 76 Year
  Sex: Female

DRUGS (11)
  1. NEXIUM [Suspect]
     Route: 048
     Dates: end: 20060523
  2. ENBREL [Suspect]
     Route: 058
     Dates: end: 20060523
  3. IMIPRAMINE HYDROCHLORIDE [Concomitant]
  4. CALCITRIOL [Concomitant]
  5. PLAQUENIL [Concomitant]
  6. PREDNISOLONE [Concomitant]
  7. LEVOTHYROXINE SODIUM [Concomitant]
  8. FOLIC ACID [Concomitant]
  9. CLIMAVAL [Concomitant]
  10. COLOXYL WITH SENNA [Concomitant]
  11. PROVERA [Concomitant]

REACTIONS (5)
  - BLOOD CREATININE INCREASED [None]
  - LETHARGY [None]
  - NEPHRITIS INTERSTITIAL [None]
  - NOCTURIA [None]
  - RENAL FAILURE ACUTE [None]
